FAERS Safety Report 10387634 (Version 1)
Quarter: 2014Q3

REPORT INFORMATION
  Report Type: Spontaneous
  Country: AR (occurrence: AR)
  Receive Date: 20140815
  Receipt Date: 20140815
  Transmission Date: 20150326
  Serious: Yes (Other)
  Sender: FDA-Public Use
  Company Number: AR-PFIZER INC-2014225086

PATIENT
  Age: 28 Year
  Sex: Female

DRUGS (1)
  1. CRIZOTINIB [Suspect]
     Active Substance: CRIZOTINIB
     Indication: RENAL CELL CARCINOMA
     Dosage: UNK
     Dates: start: 201210

REACTIONS (4)
  - Respiratory tract infection [Unknown]
  - Visual impairment [Recovered/Resolved]
  - Off label use [Unknown]
  - Pleural effusion [Unknown]

NARRATIVE: CASE EVENT DATE: 201302
